FAERS Safety Report 5237073-2 (Version None)
Quarter: 2007Q1

REPORT INFORMATION
  Report Type: 
  Country: None (occurrence: None)
  Receive Date: 20070209
  Receipt Date: 20070125
  Transmission Date: 20070707
  Serious: Yes (Hospitalization)
  Sender: FDA-Public Use
  Company Number: 2007S1000768

PATIENT
  Age: 75 Year
  Sex: Female
  Weight: 61.2356 kg

DRUGS (5)
  1. FENTANYL TRANSDERMAL SYSTEM [Suspect]
     Indication: BACK PAIN
     Dosage: 100 UG/HR; EVERY 3 DAYS; TRANSDERMAL
     Route: 062
     Dates: end: 20070124
  2. HYDROMORPHONE HCL [Concomitant]
  3. OXYCODONE WITH APAP [Concomitant]
  4. PREGABALIN [Concomitant]
  5. DIAZEPAM [Concomitant]

REACTIONS (4)
  - ACCIDENTAL OVERDOSE [None]
  - BODY TEMPERATURE INCREASED [None]
  - MEDICATION ERROR [None]
  - SEDATION [None]
